FAERS Safety Report 7764232-7 (Version None)
Quarter: 2011Q3

REPORT INFORMATION
  Report Type: 
  Country: None (occurrence: None)
  Receive Date: 20110919
  Receipt Date: 20110919
  Transmission Date: 20111222
  Serious: No
  Sender: FDA-Public Use
  Company Number: None

PATIENT
  Sex: Female

DRUGS (1)
  1. EFFEXOR XR [Suspect]
     Indication: DEPRESSION
     Dosage: AS ABOVE 1 QD

REACTIONS (6)
  - CRYING [None]
  - AGITATION [None]
  - PRODUCT SUBSTITUTION ISSUE [None]
  - INSOMNIA [None]
  - BLOOD PRESSURE INCREASED [None]
  - DIZZINESS [None]
